FAERS Safety Report 23471841 (Version 1)
Quarter: 2024Q1

REPORT INFORMATION
  Report Type: Spontaneous
  Country: US (occurrence: None)
  Receive Date: 20240202
  Receipt Date: 20240202
  Transmission Date: 20240410
  Serious: No
  Sender: FDA-Public Use
  Company Number: None

PATIENT
  Age: 72 Year
  Sex: Female
  Weight: 113.85 kg

DRUGS (2)
  1. VTAMA [Suspect]
     Active Substance: TAPINAROF
     Indication: Psoriasis
     Dosage: APPLY A THIN LAYER TO AFFECTED AREA(S) ON FEET DAILY UNTIL PSORIASIS SETTLES  DOWN AS DIRE?
     Dates: start: 202308
  2. VTAMA [Suspect]
     Active Substance: TAPINAROF
     Indication: Nail dystrophy

REACTIONS (1)
  - Sepsis [None]
